FAERS Safety Report 5727765-0 (Version None)
Quarter: 2008Q2

REPORT INFORMATION
  Report Type: 
  Country: None (occurrence: None)
  Receive Date: 20080505
  Receipt Date: 20080422
  Transmission Date: 20081010
  Serious: Yes (Hospitalization)
  Sender: FDA-Public Use
  Company Number: NL-ELI_LILLY_AND_COMPANY-NL200804005970

PATIENT
  Age: 17 Year
  Sex: Female

DRUGS (6)
  1. CYMBALTA [Suspect]
     Indication: DEPRESSION
     Dosage: 30 MG, DAILY (1/D)
     Route: 048
     Dates: start: 20080206, end: 20080229
  2. CONCERTA [Concomitant]
     Dosage: 18 MG, DAILY (1/D)
     Route: 048
     Dates: start: 20080228, end: 20080228
  3. OXAZEPAM [Concomitant]
     Indication: ATTENTION DEFICIT/HYPERACTIVITY DISORDER
     Dosage: 10 MG, 3/D
     Route: 048
     Dates: start: 20080229, end: 20080229
  4. OXAZEPAM [Concomitant]
     Dosage: 50 MG, UNKNOWN
     Route: 048
     Dates: start: 20080301, end: 20080301
  5. OXAZEPAM [Concomitant]
     Dosage: 10 MG, 3/D
     Route: 048
     Dates: start: 20080302, end: 20080303
  6. SEROQUEL [Concomitant]
     Indication: ATTENTION DEFICIT/HYPERACTIVITY DISORDER
     Dosage: 25 MG, DAILY (1/D)
     Route: 048
     Dates: start: 20080301, end: 20080303

REACTIONS (6)
  - BALANCE DISORDER [None]
  - CHEST PAIN [None]
  - EXTRAPYRAMIDAL DISORDER [None]
  - HYPERHIDROSIS [None]
  - MOOD SWINGS [None]
  - OCULOGYRIC CRISIS [None]
